FAERS Safety Report 12513529 (Version 1)
Quarter: 2016Q2

REPORT INFORMATION
  Report Type: Spontaneous
  Country: US (occurrence: None)
  Receive Date: 20160629
  Receipt Date: 20160629
  Transmission Date: 20160815
  Serious: Yes (Death)
  Sender: FDA-Public Use
  Company Number: None

PATIENT
  Age: 64 Year
  Sex: Female

DRUGS (1)
  1. IBRANCE [Suspect]
     Active Substance: PALBOCICLIB
     Indication: BREAST CANCER
     Dosage: 75MG CAP 1 QD-FOR 21 DAYS PO
     Route: 048
     Dates: start: 20151103

REACTIONS (1)
  - Death [None]

NARRATIVE: CASE EVENT DATE: 20160624
